FAERS Safety Report 6324844-4 (Version None)
Quarter: 2009Q3

REPORT INFORMATION
  Report Type: 
  Country: None (occurrence: None)
  Receive Date: 20090824
  Receipt Date: 20090624
  Transmission Date: 20100115
  Serious: No
  Sender: FDA-Public Use
  Company Number: US-ABBOTT-09P-163-0581797-00

PATIENT
  Sex: Male
  Weight: 77.18 kg

DRUGS (6)
  1. NIASPAN [Suspect]
     Indication: LOW DENSITY LIPOPROTEIN INCREASED
     Dates: start: 20070101, end: 20070101
  2. NIASPAN [Suspect]
     Indication: HIGH DENSITY LIPOPROTEIN DECREASED
  3. VYTORIN [Concomitant]
     Indication: DRUG USE FOR UNKNOWN INDICATION
  4. ALTACE [Concomitant]
     Indication: DRUG USE FOR UNKNOWN INDICATION
  5. TOPROL-XL [Concomitant]
     Indication: DRUG USE FOR UNKNOWN INDICATION
  6. SYNTHROID [Concomitant]
     Indication: DRUG USE FOR UNKNOWN INDICATION

REACTIONS (3)
  - ERYTHEMA [None]
  - FEELING HOT [None]
  - FORMICATION [None]
